FAERS Safety Report 11947942 (Version 2)
Quarter: 2016Q1

REPORT INFORMATION
  Report Type: Report from Study
  Country: US (occurrence: US)
  Receive Date: 20160125
  Receipt Date: 20160203
  Transmission Date: 20160526
  Serious: Yes (Death)
  Sender: FDA-Public Use
  Company Number: US-CELGENE-USA-2016013872

PATIENT
  Age: 57 Year
  Sex: Male

DRUGS (2)
  1. AZACITIDINE INJECTIBLE [Suspect]
     Active Substance: AZACITIDINE
  2. VIDAZA [Suspect]
     Active Substance: AZACITIDINE
     Indication: CHRONIC MYELOID LEUKAEMIA
     Route: 058

REACTIONS (1)
  - Death [Fatal]
